FAERS Safety Report 7054383-7 (Version None)
Quarter: 2010Q4

REPORT INFORMATION
  Report Type: 
  Country: None (occurrence: None)
  Receive Date: 20101015
  Receipt Date: 20101005
  Transmission Date: 20110411
  Serious: Yes (Other)
  Sender: FDA-Public Use
  Company Number: DSA_44077_2010

PATIENT
  Sex: Male

DRUGS (1)
  1. BUPROPION HCL [Suspect]
     Indication: PRODUCT USED FOR UNKNOWN INDICATION
     Dosage: (TWO TABLETS OF UNSPECIFIED STRENGTH IN THE MORNING ORAL)
     Route: 048
     Dates: start: 20090101

REACTIONS (2)
  - APHASIA [None]
  - MEMORY IMPAIRMENT [None]
